FAERS Safety Report 6539201-5 (Version None)
Quarter: 2010Q1

REPORT INFORMATION
  Report Type: 
  Country: None (occurrence: None)
  Receive Date: 20100115
  Receipt Date: 20100107
  Transmission Date: 20100710
  Serious: Yes (Hospitalization)
  Sender: FDA-Public Use
  Company Number: US-JNJFOC-20091106066

PATIENT
  Sex: Female
  Weight: 99.79 kg

DRUGS (4)
  1. REMICADE [Suspect]
     Indication: COLITIS ULCERATIVE
     Route: 042
  2. REMICADE [Suspect]
     Indication: CROHN'S DISEASE
     Dosage: 2 DOSES-WEEKS 0 + 2
     Route: 042
  3. VANCOMYCIN [Suspect]
     Indication: PNEUMONIA
     Route: 042
  4. PREDNISONE [Concomitant]
     Indication: COLITIS ULCERATIVE

REACTIONS (4)
  - DIFFUSE ALVEOLAR DAMAGE [None]
  - HEADACHE [None]
  - INTERSTITIAL LUNG DISEASE [None]
  - RED MAN SYNDROME [None]
